FAERS Safety Report 4851192-1 (Version None)
Quarter: 2005Q4

REPORT INFORMATION
  Report Type: 
  Country: None (occurrence: None)
  Receive Date: 20051208
  Receipt Date: 20051128
  Transmission Date: 20060501
  Serious: Yes (Other)
  Sender: FDA-Public Use
  Company Number: 2005108885

PATIENT
  Age: 24 Year
  Sex: Female
  Weight: 67 kg

DRUGS (1)
  1. BENADRYL [Suspect]
     Indication: SINUS CONGESTION
     Dosage: 2 TABS ONCE DAILY FOR 2 DAYS, ORAL
     Route: 048
     Dates: start: 20050729, end: 20050730

REACTIONS (4)
  - DRUG HYPERSENSITIVITY [None]
  - DYSPNOEA [None]
  - HYPOAESTHESIA [None]
  - URTICARIA GENERALISED [None]
